FAERS Safety Report 9639791 (Version 1)
Quarter: 2013Q4

REPORT INFORMATION
  Report Type: Spontaneous
  Country: FR (occurrence: FR)
  Receive Date: 20131023
  Receipt Date: 20131023
  Transmission Date: 20140711
  Serious: Yes (Hospitalization)
  Sender: FDA-Public Use
  Company Number: FR-JNJFOC-20131010273

PATIENT
  Age: 50 Year
  Sex: Male

DRUGS (6)
  1. REMICADE [Suspect]
     Indication: PSORIASIS
     Dosage: PERFUSION 36
     Route: 042
     Dates: start: 20130620
  2. REMICADE [Suspect]
     Indication: PSORIASIS
     Dosage: 5 MG/KG RECOMMENDED EVERY MONTH THEN EVERY 6 TO 8 WEEKS
     Route: 042
     Dates: start: 20080922
  3. DIPROSONE [Concomitant]
     Indication: PSORIASIS
     Route: 061
  4. GLYCEROL [Concomitant]
     Indication: PSORIASIS
     Route: 061
  5. DEXERYL [Concomitant]
     Indication: PSORIASIS
     Route: 061
  6. DOLIPRANE [Concomitant]
     Indication: ANALGESIC THERAPY
     Route: 065

REACTIONS (4)
  - Interstitial lung disease [Not Recovered/Not Resolved]
  - Interstitial lung disease [Not Recovered/Not Resolved]
  - Hypertension [Unknown]
  - Hepatic steatosis [Unknown]
